FAERS Safety Report 6057224-X (Version None)
Quarter: 2009Q1

REPORT INFORMATION
  Report Type: 
  Country: None (occurrence: None)
  Receive Date: 20090129
  Receipt Date: 20080418
  Transmission Date: 20090719
  Serious: No
  Sender: FDA-Public Use
  Company Number: A0724880A

PATIENT
  Sex: Female

DRUGS (3)
  1. WELLBUTRIN [Suspect]
     Route: 048
  2. ZYPREXA [Suspect]
     Route: 048
  3. BUSPAR [Suspect]
     Route: 048

REACTIONS (1)
  - DISTURBANCE IN ATTENTION [None]
